FAERS Safety Report 10008359 (Version 2)
Quarter: 2014Q1

REPORT INFORMATION
  Report Type: Spontaneous
  Country: US (occurrence: US)
  Receive Date: 20140313
  Receipt Date: 20140313
  Transmission Date: 20141002
  Serious: No
  Sender: FDA-Public Use
  Company Number: US-GILEAD-2013-0074038

PATIENT
  Sex: Female

DRUGS (4)
  1. LETAIRIS [Suspect]
     Indication: PULMONARY ARTERIAL HYPERTENSION
     Dosage: 10 MG, QD
     Dates: start: 20130220
  2. LETAIRIS [Suspect]
     Dosage: 10 UNK, UNK
     Dates: start: 20130218
  3. TYVASO [Concomitant]
  4. ADCIRCA [Concomitant]

REACTIONS (3)
  - Rash pruritic [Unknown]
  - Oedema [Unknown]
  - Nasal congestion [Unknown]
